FAERS Safety Report 5502919-7 (Version None)
Quarter: 2007Q4

REPORT INFORMATION
  Report Type: 
  Country: None (occurrence: None)
  Receive Date: 20071031
  Receipt Date: 20071026
  Transmission Date: 20080405
  Serious: Yes (Other)
  Sender: FDA-Public Use
  Company Number: A0690074A

PATIENT
  Age: 47 Year
  Sex: Female

DRUGS (4)
  1. COREG CR [Suspect]
     Indication: HYPERTENSION
     Dosage: 10MG PER DAY
     Route: 048
  2. VITAMIN B-12 [Suspect]
  3. METFORMIN HCL [Concomitant]
  4. ESTROGEN REPLACEMENT [Concomitant]

REACTIONS (5)
  - ANAPHYLACTIC SHOCK [None]
  - NAUSEA [None]
  - THROAT TIGHTNESS [None]
  - URTICARIA [None]
  - VOMITING [None]
